FAERS Safety Report 12278915 (Version 2)
Quarter: 2016Q4

REPORT INFORMATION
  Report Type: Report from Study
  Country: CA (occurrence: CA)
  Receive Date: 20160418
  Receipt Date: 20161208
  Transmission Date: 20170207
  Serious: Yes (Hospitalization)
  Sender: FDA-Public Use
  Company Number: PHHY2015CA101456

PATIENT
  Age: 44 Year
  Sex: Female
  Weight: 40.82 kg

DRUGS (1)
  1. GILENYA [Suspect]
     Active Substance: FINGOLIMOD HYDROCHLORIDE
     Indication: RELAPSING-REMITTING MULTIPLE SCLEROSIS
     Route: 048
     Dates: start: 20110928

REACTIONS (6)
  - Fatigue [Unknown]
  - Coronary artery dissection [Unknown]
  - Chest pain [Unknown]
  - Pain in jaw [Unknown]
  - Nervous system disorder [Unknown]
  - Chest discomfort [Unknown]

NARRATIVE: CASE EVENT DATE: 20160408
